FAERS Safety Report 16892592 (Version 2)
Quarter: 2019Q4

REPORT INFORMATION
  Report Type: Spontaneous
  Country: US (occurrence: US)
  Receive Date: 20191007
  Receipt Date: 20191029
  Transmission Date: 20200122
  Serious: Yes (Hospitalization)
  Sender: FDA-Public Use
  Company Number: US-TEVA-2019-US-1118777

PATIENT
  Age: 40 Year
  Sex: Male

DRUGS (7)
  1. LAMOTRIGINE. [Concomitant]
     Active Substance: LAMOTRIGINE
     Dosage: 50 MILLIGRAM DAILY;
     Route: 065
  2. CLONAZEPAM. [Suspect]
     Active Substance: CLONAZEPAM
     Indication: ANXIETY
     Dosage: TAPERING OFF CLONAZEPAM FOR 1 MONTH; WITH SUBSEQUENT DISCONTINUATION
     Route: 065
  3. RISPERIDONE. [Concomitant]
     Active Substance: RISPERIDONE
     Dosage: 1 MILLIGRAM DAILY;
     Route: 065
  4. CITALOPRAM [Concomitant]
     Active Substance: CITALOPRAM HYDROBROMIDE
     Dosage: 60 MILLIGRAM DAILY;
     Route: 065
  5. CLONAZEPAM. [Suspect]
     Active Substance: CLONAZEPAM
     Indication: PANIC ATTACK
  6. CHLORDIAZEPOXIDE. [Concomitant]
     Active Substance: CHLORDIAZEPOXIDE
     Dosage: 30 MILLIGRAM DAILY;
     Route: 065
  7. CLONAZEPAM. [Suspect]
     Active Substance: CLONAZEPAM
     Indication: DEPRESSION

REACTIONS (19)
  - Tobacco user [Unknown]
  - Vomiting [Unknown]
  - Headache [Unknown]
  - Confusional state [Unknown]
  - Anxiety [Unknown]
  - Agoraphobia [Unknown]
  - Palpitations [Unknown]
  - Dizziness [Unknown]
  - Carbon monoxide poisoning [Recovering/Resolving]
  - Panic attack [Unknown]
  - Asthenia [Unknown]
  - Chest pain [Unknown]
  - Restlessness [Unknown]
  - Tachycardia [Recovered/Resolved]
  - Withdrawal syndrome [Unknown]
  - Wheezing [Unknown]
  - Dyspnoea [Unknown]
  - Nausea [Unknown]
  - Cough [Unknown]
